FAERS Safety Report 22287294 (Version 22)
Quarter: 2024Q2

REPORT INFORMATION
  Report Type: Report from Study
  Country: CL (occurrence: CL)
  Receive Date: 20230505
  Receipt Date: 20240524
  Transmission Date: 20240715
  Serious: Yes (Hospitalization, Other)
  Sender: FDA-Public Use
  Company Number: CL-002147023-NVSC2023CL099873

PATIENT
  Age: 65 Year
  Sex: Female
  Weight: 72 kg

DRUGS (15)
  1. KISQALI [Suspect]
     Active Substance: RIBOCICLIB
     Indication: Breast cancer
     Dosage: 600 MG, QD (FIRST CYCLE) (3 TABLETS)
     Route: 048
     Dates: start: 20230426
  2. KISQALI [Suspect]
     Active Substance: RIBOCICLIB
     Dosage: 400 MG, QD
     Route: 048
     Dates: start: 20230426
  3. KISQALI [Suspect]
     Active Substance: RIBOCICLIB
     Dosage: 400 MG, QD
     Route: 048
     Dates: start: 20230426
  4. KISQALI [Suspect]
     Active Substance: RIBOCICLIB
     Dosage: 600 MG, QD
     Route: 065
     Dates: start: 20230426
  5. KISQALI [Suspect]
     Active Substance: RIBOCICLIB
     Dosage: 600 MG, QD
     Route: 048
     Dates: start: 20230426, end: 20240327
  6. KISQALI [Suspect]
     Active Substance: RIBOCICLIB
     Dosage: 600 MG, QD (3 TABLETS)
     Route: 065
     Dates: start: 20230506
  7. KISQALI [Suspect]
     Active Substance: RIBOCICLIB
     Dosage: 3 DOSAGE FORM (STOPPED APPROXIMATELY 2 WEEKS AGO)
     Route: 065
     Dates: start: 20230602
  8. KISQALI [Suspect]
     Active Substance: RIBOCICLIB
     Dosage: 400 MG, QD
     Route: 048
     Dates: start: 20230630
  9. KISQALI [Suspect]
     Active Substance: RIBOCICLIB
     Dosage: 2 DOSAGE FORM
     Route: 065
     Dates: start: 20230828
  10. KISQALI [Suspect]
     Active Substance: RIBOCICLIB
     Dosage: 600 MG, QD (3 TABLETS)
     Route: 048
  11. KISQALI [Suspect]
     Active Substance: RIBOCICLIB
     Dosage: 600 MG, QD (3 TIMES IN THE MORNING)
     Route: 048
  12. KISQALI [Suspect]
     Active Substance: RIBOCICLIB
     Dosage: 600 MG, QD (3 TABLETS)
     Route: 048
  13. KISQALI [Suspect]
     Active Substance: RIBOCICLIB
     Dosage: 600 MG, QD (3 TABLETS)
     Route: 048
     Dates: start: 20240405
  14. LETROZOLE [Suspect]
     Active Substance: LETROZOLE
     Indication: Product used for unknown indication
     Dosage: UNK
     Route: 065
  15. TIADIS [Concomitant]
     Indication: Product used for unknown indication
     Dosage: UNK
     Route: 065

REACTIONS (37)
  - Intestinal obstruction [Recovering/Resolving]
  - Eating disorder [Unknown]
  - Fluid intake reduced [Unknown]
  - Inflammation [Unknown]
  - Hepatitis [Recovering/Resolving]
  - Ascites [Recovering/Resolving]
  - Decreased appetite [Unknown]
  - Oesophagitis [Unknown]
  - Abdominal discomfort [Unknown]
  - Vomiting [Recovering/Resolving]
  - Weight decreased [Unknown]
  - Contusion [Unknown]
  - Haematoma [Unknown]
  - Liver injury [Unknown]
  - Full blood count abnormal [Unknown]
  - Liver function test increased [Unknown]
  - Abdominal pain [Recovered/Resolved]
  - Cognitive disorder [Unknown]
  - Epistaxis [Unknown]
  - Influenza [Unknown]
  - Rhinorrhoea [Unknown]
  - Nasopharyngitis [Unknown]
  - Pain in extremity [Unknown]
  - Osteoarthritis [Unknown]
  - Cough [Unknown]
  - Pain [Not Recovered/Not Resolved]
  - Malaise [Recovered/Resolved]
  - Laboratory test abnormal [Unknown]
  - Mental disorder [Unknown]
  - Liver disorder [Unknown]
  - Blood glucose abnormal [Unknown]
  - White blood cell disorder [Recovering/Resolving]
  - Fatigue [Unknown]
  - Weight increased [Unknown]
  - Dysphonia [Unknown]
  - Hypersensitivity [Unknown]
  - Blood alkaline phosphatase increased [Recovering/Resolving]

NARRATIVE: CASE EVENT DATE: 20230724
